FAERS Safety Report 8567332 (Version 2)
Quarter: 2015Q2

REPORT INFORMATION
  Report Type: Report from Study
  Country: GB (occurrence: GB)
  Receive Date: 20120517
  Receipt Date: 20150612
  Transmission Date: 20150821
  Serious: Yes (Death, Other)
  Sender: FDA-Public Use
  Company Number: GB-ROCHE-1067202

PATIENT

DRUGS (4)
  1. RITUXIMAB [Suspect]
     Active Substance: RITUXIMAB
     Indication: SYSTEMIC LUPUS ERYTHEMATOSUS
  2. RITUXIMAB [Suspect]
     Active Substance: RITUXIMAB
     Indication: AUTOIMMUNE HAEMOLYTIC ANAEMIA
  3. RITUXIMAB [Suspect]
     Active Substance: RITUXIMAB
     Indication: NON-HODGKIN^S LYMPHOMA
     Route: 042
  4. RITUXIMAB [Suspect]
     Active Substance: RITUXIMAB
     Indication: IMMUNE THROMBOCYTOPENIC PURPURA

REACTIONS (15)
  - Bronchitis bacterial [Unknown]
  - Ear infection [Unknown]
  - Cytomegalovirus infection [Unknown]
  - Encephalitis [Fatal]
  - Campylobacter gastroenteritis [Unknown]
  - Urinary tract infection bacterial [Unknown]
  - Gastroenteritis bacterial [Unknown]
  - Herpes zoster [Unknown]
  - Pneumonia bacterial [Unknown]
  - Oesophageal candidiasis [Unknown]
  - Osteomyelitis bacterial [Unknown]
  - Hypogammaglobulinaemia [Unknown]
  - Conjunctivitis bacterial [Unknown]
  - Sinusitis bacterial [Unknown]
  - Bronchopulmonary aspergillosis [Unknown]
